FAERS Safety Report 9350753 (Version 3)
Quarter: 2013Q3

REPORT INFORMATION
  Report Type: Report from Study
  Country: AU (occurrence: AU)
  Receive Date: 20130617
  Receipt Date: 20130917
  Transmission Date: 20140515
  Serious: Yes (Other)
  Sender: FDA-Public Use
  Company Number: PHHY2013AU015854

PATIENT
  Age: 70 Year
  Sex: Female

DRUGS (1)
  1. ACLASTA [Suspect]
     Dosage: 5 MG, UNK
     Route: 042
     Dates: start: 20120224

REACTIONS (5)
  - Bronchitis [Not Recovered/Not Resolved]
  - Pertussis [Not Recovered/Not Resolved]
  - Viral infection [Unknown]
  - Hypersensitivity [Unknown]
  - Rhinorrhoea [Not Recovered/Not Resolved]
